FAERS Safety Report 13103814 (Version 1)
Quarter: 2017Q1

REPORT INFORMATION
  Report Type: Spontaneous
  Country: US (occurrence: US)
  Receive Date: 20170111
  Receipt Date: 20170111
  Transmission Date: 20170428
  Serious: Yes (Hospitalization, Other)
  Sender: FDA-Public Use
  Company Number: US-TAKEDA-2017TUS000627

PATIENT
  Age: 63 Year
  Sex: Female
  Weight: 98.41 kg

DRUGS (1)
  1. ULORIC [Suspect]
     Active Substance: FEBUXOSTAT
     Indication: GOUT
     Dosage: 80 MG, QD
     Route: 048
     Dates: start: 201312, end: 20161215

REACTIONS (7)
  - Headache [Not Recovered/Not Resolved]
  - Balance disorder [Unknown]
  - Abdominal pain upper [Unknown]
  - Malaise [Unknown]
  - Renal failure [Recovered/Resolved]
  - Presyncope [Unknown]
  - Fall [Unknown]

NARRATIVE: CASE EVENT DATE: 2016
